FAERS Safety Report 13642568 (Version 2)
Quarter: 2017Q2

REPORT INFORMATION
  Report Type: Spontaneous
  Country: US (occurrence: US)
  Receive Date: 20170612
  Receipt Date: 20170616
  Transmission Date: 20170830
  Serious: Yes (Hospitalization, Other)
  Sender: FDA-Public Use
  Company Number: US-PFIZER INC-2017248100

PATIENT
  Age: 67 Year
  Sex: Female
  Weight: 69.3 kg

DRUGS (2)
  1. IBRANCE [Suspect]
     Active Substance: PALBOCICLIB
     Indication: BREAST CANCER METASTATIC
     Dosage: 125 MG, CYCLIC (D 1-21 Q 28 DAYS) (DAILY X 21/28 DAYS)
     Route: 048
     Dates: start: 20170519, end: 20170611
  2. IBRANCE [Suspect]
     Active Substance: PALBOCICLIB
     Dosage: 100 MG CYCLIC (DAILY X 21 DAYS THEN 7 DAYS OFF)

REACTIONS (7)
  - Haematocrit decreased [Unknown]
  - Dyspnoea exertional [Unknown]
  - Red blood cell count decreased [Unknown]
  - Oxygen saturation decreased [Unknown]
  - White blood cell count decreased [Unknown]
  - Neutropenia [Unknown]
  - Haemoglobin decreased [Unknown]

NARRATIVE: CASE EVENT DATE: 20170526
